FAERS Safety Report 10146742 (Version 2)
Quarter: 2014Q2

REPORT INFORMATION
  Report Type: Report from Study
  Country: CA (occurrence: CA)
  Receive Date: 20140501
  Receipt Date: 20140501
  Transmission Date: 20141212
  Serious: Yes (Hospitalization, Other)
  Sender: FDA-Public Use
  Company Number: CA-ABBVIE-14P-028-1209211-00

PATIENT
  Sex: Female
  Weight: 90.8 kg

DRUGS (6)
  1. HUMIRA [Suspect]
     Indication: PSORIASIS
     Route: 058
     Dates: start: 20120727, end: 20130823
  2. HUMIRA [Suspect]
     Route: 058
     Dates: start: 20131006, end: 2014
  3. HUMIRA [Suspect]
     Route: 058
     Dates: start: 20140303
  4. CLOBEX [Concomitant]
     Indication: PSORIASIS
  5. METHOTREXATE [Concomitant]
     Indication: PSORIASIS
     Dosage: UNIT DOSE: 15 TO 20 MG
     Route: 048
     Dates: start: 20110309, end: 20110727
  6. SORIATANE [Concomitant]
     Indication: PSORIASIS
     Dosage: UNIT DOSE: 20 TO 35 MG
     Route: 048
     Dates: start: 20110926, end: 20111126

REACTIONS (3)
  - Uterine polyp [Recovered/Resolved]
  - Psoriasis [Not Recovered/Not Resolved]
  - Drug effect decreased [Not Recovered/Not Resolved]
